FAERS Safety Report 5983588-9 (Version None)
Quarter: 2008Q4

REPORT INFORMATION
  Report Type: 
  Country: None (occurrence: None)
  Receive Date: 20081208
  Receipt Date: 20081128
  Transmission Date: 20090506
  Serious: Yes (Hospitalization)
  Sender: FDA-Public Use
  Company Number: RO-ABBOTT-08P-135-0490143-00

PATIENT
  Sex: Female
  Weight: 98 kg

DRUGS (3)
  1. TARKA [Suspect]
     Indication: HYPERTENSION
     Route: 048
     Dates: start: 20080926
  2. TARKA [Suspect]
     Indication: CARDIAC DISORDER
  3. TRIMETAZIDINE [Concomitant]
     Indication: ANGINA PECTORIS
     Route: 048
     Dates: start: 20040101

REACTIONS (1)
  - GASTROINTESTINAL CARCINOMA [None]
